FAERS Safety Report 9421194 (Version 3)
Quarter: 2013Q3

REPORT INFORMATION
  Report Type: Spontaneous
  Country: US (occurrence: US)
  Receive Date: 20130725
  Receipt Date: 20130809
  Transmission Date: 20140515
  Serious: Yes (Other)
  Sender: FDA-Public Use
  Company Number: US-BAXTER-2013BAX028581

PATIENT
  Age: 41 Year
  Sex: Female
  Weight: 66 kg

DRUGS (7)
  1. GAMMAGARD S/D [Suspect]
     Indication: IMMUNODEFICIENCY COMMON VARIABLE
     Route: 042
     Dates: start: 20091007, end: 20091007
  2. DIPHENHYDRAMINE [Concomitant]
     Indication: PREMEDICATION
     Route: 065
     Dates: start: 20091007, end: 20091007
  3. DIPHENHYDRAMINE [Concomitant]
     Indication: ADVERSE EVENT
     Route: 065
  4. ACETAMINOPHEN [Concomitant]
     Indication: PREMEDICATION
     Route: 065
     Dates: start: 20091007, end: 20091007
  5. METHYLPREDNISOLONE [Concomitant]
     Indication: PREMEDICATION
     Route: 042
     Dates: start: 20091007, end: 20091007
  6. PNEUMOCOCCAL VACCINES [Concomitant]
     Indication: IMMUNISATION
     Route: 065
  7. TETANUS TOXOID [Concomitant]
     Indication: IMMUNISATION
     Route: 065

REACTIONS (2)
  - Serum sickness [Unknown]
  - Joint effusion [Unknown]
